FAERS Safety Report 5744873-9 (Version None)
Quarter: 2008Q2

REPORT INFORMATION
  Report Type: 
  Country: None (occurrence: None)
  Receive Date: 20080516
  Receipt Date: 20080508
  Transmission Date: 20081010
  Serious: Yes (Other)
  Sender: FDA-Public Use
  Company Number: WAES0804USA02605

PATIENT
  Age: 67 Year
  Sex: Female

DRUGS (6)
  1. FOSAMAX [Suspect]
     Indication: OSTEOPOROSIS
     Dosage: 35 MG/WKY PO
     Route: 048
     Dates: start: 20080128, end: 20080406
  2. CARDENALIN [Concomitant]
  3. CONIEL [Concomitant]
  4. EBRANTIL [Concomitant]
  5. RENIVACE [Concomitant]
  6. SOLANAX [Concomitant]

REACTIONS (2)
  - ABDOMINAL PAIN UPPER [None]
  - PARAESTHESIA ORAL [None]
